FAERS Safety Report 5670454-1 (Version None)
Quarter: 2008Q1

REPORT INFORMATION
  Report Type: 
  Country: None (occurrence: None)
  Receive Date: 20080318
  Receipt Date: 20080310
  Transmission Date: 20080703
  Serious: Yes (Hospitalization)
  Sender: FDA-Public Use
  Company Number: CH-BRISTOL-MYERS SQUIBB COMPANY-14118061

PATIENT
  Age: 63 Year
  Sex: Male

DRUGS (8)
  1. ERBITUX [Suspect]
     Indication: HYPOPHARYNGEAL CANCER
     Route: 041
     Dates: start: 20071029, end: 20071212
  2. FOLVITE [Concomitant]
     Route: 048
  3. ASPIRIN [Concomitant]
     Dosage: DOSAGE FORM- TABLET.
     Route: 048
  4. LAXOBERON [Concomitant]
     Dosage: DOSE- 20 GTT DROPS.
     Route: 048
  5. MS CONTIN [Concomitant]
     Route: 048
  6. DAFALGAN [Concomitant]
     Route: 048
  7. MEPHADOLOR [Concomitant]
     Route: 048
  8. DORMICUM [Concomitant]
     Route: 048

REACTIONS (1)
  - LEUKOCYTOCLASTIC VASCULITIS [None]
